FAERS Safety Report 4399893-6 (Version None)
Quarter: 2004Q3

REPORT INFORMATION
  Report Type: 
  Country: None (occurrence: None)
  Receive Date: 20040712
  Receipt Date: 20030902
  Transmission Date: 20050211
  Serious: Yes (Disabling)
  Sender: FDA-Public Use
  Company Number: 3584

PATIENT
  Sex: Male
  Weight: 94.3482 kg

DRUGS (5)
  1. PACERONE [Suspect]
     Indication: VENTRICULAR TACHYCARDIA
     Dosage: 200 MG QD PO
     Route: 048
     Dates: start: 20030401, end: 20030702
  2. COUMADIN [Concomitant]
  3. FLONASE [Concomitant]
  4. ASPIRIN [Concomitant]
  5. BETAPACE [Concomitant]

REACTIONS (1)
  - OPTIC NEURITIS [None]
